FAERS Safety Report 6492737-8 (Version None)
Quarter: 2009Q4

REPORT INFORMATION
  Report Type: 
  Country: None (occurrence: None)
  Receive Date: 20091211
  Receipt Date: 20091211
  Transmission Date: 20100525
  Serious: Yes (Disabling)
  Sender: FDA-Public Use
  Company Number: None

PATIENT
  Sex: Male
  Weight: 69.4003 kg

DRUGS (1)
  1. SPIRONOLACTONE 25MG 17 ACTAVIS ELIZA [Suspect]
     Indication: DIURETIC THERAPY
     Dosage: 25MG  3X DAILY
     Dates: start: 20050101, end: 20090201

REACTIONS (3)
  - BREAST MASS [None]
  - PROCEDURAL SITE REACTION [None]
  - STOMACH MASS [None]
